FAERS Safety Report 4515400-9 (Version None)
Quarter: 2004Q4

REPORT INFORMATION
  Report Type: 
  Country: None (occurrence: None)
  Receive Date: 20041029
  Receipt Date: 20040915
  Transmission Date: 20050328
  Serious: No
  Sender: FDA-Public Use
  Company Number: 200416568US

PATIENT
  Age: 71 Year
  Sex: Male

DRUGS (12)
  1. KETEK [Suspect]
     Dosage: 400 MG BID PO
     Route: 048
     Dates: start: 20040830
  2. ISOSORBIDE MONONITRATE (ISMO) [Concomitant]
  3. ASPIRIN [Concomitant]
  4. TAMSULOSIN HYDROCHLORIDE [Concomitant]
  5. ELAVIL [Concomitant]
  6. HYDROCORTISONE ACETATE (CORTEF) [Concomitant]
  7. CALCIUM CARBONATE (TUMS) [Concomitant]
  8. CALCIUM GLUCONATE [Concomitant]
  9. STARTTERA [Concomitant]
  10. PRAVASTATIN SODIUM (PRAVACHOL) [Concomitant]
  11. MULTIVITAMIN/MINERAL [Concomitant]
  12. VITAMIN B COMPLEX CAP [Concomitant]

REACTIONS (1)
  - TONGUE BLACK HAIRY [None]
